FAERS Safety Report 9387311 (Version 1)
Quarter: 2013Q3

REPORT INFORMATION
  Report Type: Spontaneous
  Country: GB (occurrence: None)
  Receive Date: 20130702
  Receipt Date: 20130702
  Transmission Date: 20140515
  Serious: Yes (Hospitalization)
  Sender: FDA-Public Use
  Company Number: TPA2013A06076

PATIENT
  Age: 57 Year
  Sex: Male

DRUGS (3)
  1. ADENURIC (FEBUXOSTAT) [Suspect]
     Indication: PROPHYLAXIS
     Dosage: 80 MG, 1-2 D
     Route: 048
     Dates: start: 20110629
  2. SILDENAFIL (SILDENAFIL) [Suspect]
     Indication: ERECTILE DYSFUNCTION
     Dosage: UNK, (1 IN 1 D), ORAL
     Route: 048
  3. OMEPRAZOLE [Concomitant]

REACTIONS (2)
  - Syncope [None]
  - Non-cardiac chest pain [None]
